FAERS Safety Report 7654030-7 (Version None)
Quarter: 2011Q3

REPORT INFORMATION
  Report Type: 
  Country: None (occurrence: None)
  Receive Date: 20110803
  Receipt Date: 20110725
  Transmission Date: 20111222
  Serious: Yes (Other)
  Sender: FDA-Public Use
  Company Number: PHEH2009US07540

PATIENT
  Sex: Female

DRUGS (10)
  1. ASPIRIN [Concomitant]
  2. ATENOLOL [Concomitant]
     Dosage: 25 MG, QHS
  3. EFFEXOR [Concomitant]
     Dosage: 75 MG, DAILY
  4. ZOMETA [Suspect]
  5. XANAX [Concomitant]
     Dosage: 0.25 MG, BID
  6. AREDIA [Suspect]
  7. ATIVAN [Concomitant]
     Dosage: 2 MG, AT BED TIME
  8. HYDROCODONE [Concomitant]
  9. METHADONE HYDROCHLORIDE [Concomitant]
     Dosage: 30 MG, TID
  10. AMIODARONE HCL [Concomitant]
     Dosage: 200 MG, DAILY

REACTIONS (10)
  - METASTASES TO BONE [None]
  - ANXIETY [None]
  - BREAST CANCER [None]
  - VENTRICULAR TACHYCARDIA [None]
  - ANHEDONIA [None]
  - OSTEONECROSIS OF JAW [None]
  - HYPERTENSION [None]
  - GENERAL PHYSICAL HEALTH DETERIORATION [None]
  - PAIN [None]
  - HYPOTHYROIDISM [None]
